FAERS Safety Report 15015067 (Version 1)
Quarter: 2018Q2

REPORT INFORMATION
  Report Type: Report from Study
  Country: JP (occurrence: JP)
  Receive Date: 20180615
  Receipt Date: 20180615
  Transmission Date: 20180711
  Serious: Yes (Death, Other)
  Sender: FDA-Public Use
  Company Number: JP-ROCHE-2138606

PATIENT

DRUGS (2)
  1. RITUXIMAB. [Suspect]
     Active Substance: RITUXIMAB
     Indication: ANTI-NEUTROPHIL CYTOPLASMIC ANTIBODY POSITIVE VASCULITIS
     Route: 041
  2. PREDNISOLONE. [Suspect]
     Active Substance: PREDNISOLONE
     Indication: ANTI-NEUTROPHIL CYTOPLASMIC ANTIBODY POSITIVE VASCULITIS
     Route: 048

REACTIONS (8)
  - Pneumonia bacterial [Unknown]
  - Interstitial lung disease [Unknown]
  - Drug eruption [Unknown]
  - Sepsis [Fatal]
  - Herpes zoster [Unknown]
  - Cytomegalovirus infection [Unknown]
  - Cytomegalovirus enterocolitis [Unknown]
  - Pneumocystis jirovecii pneumonia [Unknown]
